FAERS Safety Report 4444838-3 (Version None)
Quarter: 2004Q3

REPORT INFORMATION
  Report Type: 
  Country: None (occurrence: None)
  Receive Date: 20040903
  Receipt Date: 20040820
  Transmission Date: 20050211
  Serious: Yes (Hospitalization)
  Sender: FDA-Public Use
  Company Number: 2004AP04434

PATIENT

DRUGS (1)
  1. DIPRIVAN [Suspect]
     Indication: SEDATION
     Dosage: 1 % IV
     Route: 042
     Dates: start: 20040812, end: 20040819

REACTIONS (1)
  - DELAYED RECOVERY FROM ANAESTHESIA [None]
